FAERS Safety Report 5636164-1 (Version None)
Quarter: 2008Q1

REPORT INFORMATION
  Report Type: 
  Country: None (occurrence: None)
  Receive Date: 20080220
  Receipt Date: 20080211
  Transmission Date: 20080703
  Serious: Yes (Other)
  Sender: FDA-Public Use
  Company Number: 167-21880-08020598

PATIENT
  Age: 77 Year

DRUGS (1)
  1. REVLIMID [Suspect]
     Indication: MULTIPLE MYELOMA
     Dosage: 25 MG, DAILY, ORAL
     Route: 048
     Dates: start: 20080107

REACTIONS (3)
  - ARRHYTHMIA [None]
  - BRADYCARDIA [None]
  - ORTHOSTATIC HYPOTENSION [None]
